FAERS Safety Report 6177476-5 (Version None)
Quarter: 2009Q2

REPORT INFORMATION
  Report Type: 
  Country: None (occurrence: None)
  Receive Date: 20090504
  Receipt Date: 20090421
  Transmission Date: 20091009
  Serious: Yes (Other)
  Sender: FDA-Public Use
  Company Number: PHHY2009DE16062

PATIENT
  Sex: Male
  Weight: 70 kg

DRUGS (1)
  1. GLEEVEC [Suspect]
     Indication: CHRONIC MYELOID LEUKAEMIA
     Dosage: MORE THAN 400 MG/DAY
     Route: 048
     Dates: start: 20060615, end: 20061231

REACTIONS (3)
  - DRUG INTOLERANCE [None]
  - DYSPNOEA [None]
  - TACHYARRHYTHMIA [None]
